FAERS Safety Report 10870934 (Version 13)
Quarter: 2015Q3

REPORT INFORMATION
  Report Type: Spontaneous
  Country: IL (occurrence: IL)
  Receive Date: 20150226
  Receipt Date: 20150901
  Transmission Date: 20151125
  Serious: Yes (Hospitalization)
  Sender: FDA-Public Use
  Company Number: IL-PFIZER INC-2015061534

PATIENT
  Age: 55 Year
  Sex: Male
  Weight: 57 kg

DRUGS (6)
  1. TARGIN [Concomitant]
     Active Substance: NALOXONE HYDROCHLORIDE\OXYCODONE HYDROCHLORIDE
     Dosage: UNK
  2. OPTALGIN [Concomitant]
     Active Substance: METAMIZOLE
     Dosage: UNK
  3. GASTRO [Concomitant]
     Dosage: UNK
  4. DEXAMETHASONE. [Concomitant]
     Active Substance: DEXAMETHASONE
     Dosage: UNK
  5. OXYCOD [Concomitant]
     Dosage: UNK
  6. SUTENT [Suspect]
     Active Substance: SUNITINIB MALATE
     Indication: RENAL CELL CARCINOMA
     Dosage: 50 MG, CYCLIC (ONCE DAILY, 2 WEEKS ON/1 WEEK OFF)
     Route: 048
     Dates: start: 20150206

REACTIONS (30)
  - Flatulence [Unknown]
  - Oral pain [Not Recovered/Not Resolved]
  - Disease progression [Not Recovered/Not Resolved]
  - Oedema peripheral [Not Recovered/Not Resolved]
  - Renal cell carcinoma [Not Recovered/Not Resolved]
  - Pain [Not Recovered/Not Resolved]
  - Pain of skin [Unknown]
  - Fatigue [Not Recovered/Not Resolved]
  - Epistaxis [Recovering/Resolving]
  - Glossodynia [Not Recovered/Not Resolved]
  - Dizziness [Recovering/Resolving]
  - Oral fungal infection [Unknown]
  - Glossodynia [Recovered/Resolved]
  - Headache [Recovering/Resolving]
  - Decreased appetite [Unknown]
  - Dyspnoea [Not Recovered/Not Resolved]
  - Wound [Not Recovered/Not Resolved]
  - Asthenia [Not Recovered/Not Resolved]
  - Dry skin [Unknown]
  - Weight decreased [Unknown]
  - Anger [Unknown]
  - Seizure [Not Recovered/Not Resolved]
  - Nausea [Recovered/Resolved]
  - Depressed mood [Not Recovered/Not Resolved]
  - Palmar-plantar erythrodysaesthesia syndrome [Recovering/Resolving]
  - Nasal dryness [Not Recovered/Not Resolved]
  - Neck pain [Not Recovered/Not Resolved]
  - Nervousness [Not Recovered/Not Resolved]
  - Constipation [Recovering/Resolving]
  - Frustration [Unknown]

NARRATIVE: CASE EVENT DATE: 2015
